FAERS Safety Report 8228023-5 (Version None)
Quarter: 2012Q1

REPORT INFORMATION
  Report Type: 
  Country: None (occurrence: None)
  Receive Date: 20120322
  Receipt Date: 20120119
  Transmission Date: 20120608
  Serious: No
  Sender: FDA-Public Use
  Company Number: US-BRISTOL-MYERS SQUIBB COMPANY-16358772

PATIENT
  Sex: Female

DRUGS (1)
  1. ERBITUX [Suspect]
     Dosage: LAST ERBITUX TREATMENT WAS ON 13JAN2012 PATIENT HAS HAD TWO ERBITUX TREATMENTS

REACTIONS (1)
  - CLAUSTROPHOBIA [None]
